FAERS Safety Report 6256304-3 (Version None)
Quarter: 2009Q3

REPORT INFORMATION
  Report Type: 
  Country: None (occurrence: None)
  Receive Date: 20090706
  Receipt Date: 20090623
  Transmission Date: 20100115
  Serious: Yes (Death, Other)
  Sender: FDA-Public Use
  Company Number: DE-BAYER-200924434GPV

PATIENT
  Age: 0 Hour
  Sex: Female
  Weight: 0.54 kg

DRUGS (1)
  1. MIRENA [Suspect]
     Route: 064
     Dates: start: 20090101, end: 20090101

REACTIONS (2)
  - FOETAL HEART RATE ABNORMAL [None]
  - PREMATURE BABY [None]
